FAERS Safety Report 5901091-9 (Version None)
Quarter: 2008Q3

REPORT INFORMATION
  Report Type: 
  Country: None (occurrence: None)
  Receive Date: 20080924
  Receipt Date: 20080908
  Transmission Date: 20090109
  Serious: Yes (Hospitalization)
  Sender: FDA-Public Use
  Company Number: DSA_32420_2008

PATIENT
  Sex: Female

DRUGS (7)
  1. LORAZEPAM [Suspect]
     Dosage: (20 MG 1X NOT THE PERSCRIBED AMOUNT ORAL)
     Route: 048
     Dates: start: 20080905, end: 20080905
  2. CITALOPRAM HYDROBROMIDE [Suspect]
     Dosage: (200 MG 1X NOT PERSCRIBED AMOUNT ORAL)
     Route: 048
     Dates: start: 20080905, end: 20080905
  3. EDRONAX  /01350601/  (EDRONAX - REBOXETINE) [Suspect]
     Dosage: (1 DF 1X NOT PERSCRIBED AMOUNT ORAL)
     Route: 048
     Dates: start: 20080905, end: 20080905
  4. SPALT LIQUA (SPALT LIQUA - IBUPROFEN) 400 MG [Suspect]
     Dosage: (1200 MG 1X NOT PERSCRIBED AMOUNT ORAL)
     Route: 048
     Dates: start: 20080905, end: 20080905
  5. PARACETAMOL  (PARACETAMOL) 500 MG [Suspect]
     Dosage: (2000 MG 1X NOT THE PERSCRIBED AMOUNT ORAL)
     Route: 048
     Dates: start: 20080905, end: 20080905
  6. RITALIN [Suspect]
     Dosage: (4 DF 1X 4 TABLETS - NOT THE PERSCRIBED AMOUNT ORAL)
     Route: 048
     Dates: start: 20080905, end: 20080905
  7. VALORON  /00205402/  (VALORON - TILIDINE HYDROCHLORIDE) [Suspect]
     Dosage: (5-6 TABLETS - NOT THE PERSCRIBED AMOUNT ORAL)
     Route: 048
     Dates: start: 20080905, end: 20080905

REACTIONS (3)
  - MULTIPLE DRUG OVERDOSE [None]
  - NYSTAGMUS [None]
  - SOMNOLENCE [None]
